FAERS Safety Report 26016324 (Version 2)
Quarter: 2025Q4

REPORT INFORMATION
  Report Type: Spontaneous
  Country: EU (occurrence: EU)
  Receive Date: 20251110
  Receipt Date: 20251121
  Transmission Date: 20260118
  Serious: Yes (Other)
  Sender: TEVA
  Company Number: EU-SANDOZ-SDZ2025DE078352

PATIENT
  Sex: Female
  Weight: 54 kg

DRUGS (3)
  1. ZOLEDRONIC ACID [Suspect]
     Active Substance: ZOLEDRONIC ACID
     Indication: Prophylaxis
     Dosage: 4 MG AS NEEDED
     Route: 042
     Dates: start: 20250925
  2. LETROZOLE [Suspect]
     Active Substance: LETROZOLE
     Indication: Aromatase inhibition therapy
     Dosage: 2.5 MG, QD
     Route: 065
     Dates: start: 20250924
  3. RIBOCICLIB [Suspect]
     Active Substance: RIBOCICLIB
     Indication: Breast cancer
     Dosage: 400 MG, QD 21 DAYS DAILY INTAKE, 7 DAYS BREAK
     Route: 065
     Dates: start: 20250924

REACTIONS (3)
  - Osteoarthritis [Recovered/Resolved]
  - Headache [Recovered/Resolved]
  - Chills [Recovered/Resolved]

NARRATIVE: CASE EVENT DATE: 20250925
